FAERS Safety Report 20653183 (Version 1)
Quarter: 2022Q1

REPORT INFORMATION
  Report Type: Spontaneous
  Country: CA (occurrence: CA)
  Receive Date: 20220330
  Receipt Date: 20220330
  Transmission Date: 20220423
  Serious: Yes (Other)
  Sender: FDA-Public Use
  Company Number: CA-OCTA-NGAM03922CA

PATIENT
  Age: 2 Year
  Sex: Male

DRUGS (1)
  1. PANZYGA [Suspect]
     Active Substance: HUMAN IMMUNOGLOBULIN G
     Indication: Neuromyopathy
     Route: 042
     Dates: start: 20220308, end: 20220309

REACTIONS (2)
  - Treponema test positive [Unknown]
  - Misleading laboratory test result [Unknown]

NARRATIVE: CASE EVENT DATE: 20220315
